FAERS Safety Report 7559512-4 (Version None)
Quarter: 2011Q2

REPORT INFORMATION
  Report Type: 
  Country: None (occurrence: None)
  Receive Date: 20110613
  Receipt Date: 20110607
  Transmission Date: 20111010
  Serious: Yes (Other)
  Sender: FDA-Public Use
  Company Number: ZYD-11-AE-062

PATIENT
  Age: 36 Week
  Sex: Male

DRUGS (4)
  1. PEGASYS [Suspect]
     Dosage: 80MCG - WEEKLY
     Dates: start: 20090612, end: 20100507
  2. RIBAVIRIN [Suspect]
     Dates: start: 20090612, end: 20100514
  3. ZYRTEC [Concomitant]
  4. PRILOSEC [Concomitant]

REACTIONS (6)
  - MATERNAL DRUGS AFFECTING FOETUS [None]
  - UMBILICAL CORD VASCULAR DISORDER [None]
  - HAEMOGLOBIN DECREASED [None]
  - JAUNDICE NEONATAL [None]
  - PREMATURE BABY [None]
  - CAESAREAN SECTION [None]
